FAERS Safety Report 4948145-1 (Version None)
Quarter: 2006Q1

REPORT INFORMATION
  Report Type: 
  Country: None (occurrence: None)
  Receive Date: 20060320
  Receipt Date: 20060206
  Transmission Date: 20060701
  Serious: Yes (Death)
  Sender: FDA-Public Use
  Company Number: PHHO2006JP02218

PATIENT
  Age: 80 Year
  Sex: Female
  Weight: 48 kg

DRUGS (22)
  1. GLEEVEC [Suspect]
     Indication: CHRONIC MYELOID LEUKAEMIA
     Dosage: 400 MG, QD
     Route: 048
     Dates: start: 20021106, end: 20021128
  2. GLEEVEC [Suspect]
     Dosage: 300 MG, QD
     Route: 048
     Dates: start: 20021129, end: 20030307
  3. GLEEVEC [Suspect]
     Dosage: 200 MG, QD
     Route: 048
     Dates: start: 20030308, end: 20030502
  4. GLEEVEC [Suspect]
     Dosage: 100 MG, QD
     Route: 048
     Dates: start: 20030503, end: 20030512
  5. GLEEVEC [Suspect]
     Dosage: 300 MG, QD
     Route: 048
     Dates: start: 20030606, end: 20030620
  6. GLEEVEC [Suspect]
     Dosage: 300 MG, QD
     Route: 048
     Dates: start: 20030628, end: 20030711
  7. GLEEVEC [Suspect]
     Dosage: 200 MG, QD
     Route: 048
     Dates: start: 20030822, end: 20030901
  8. GLEEVEC [Suspect]
     Dosage: 100 MG, QD
     Route: 048
     Dates: start: 20031003, end: 20050421
  9. GLEEVEC [Suspect]
     Dosage: 200 MG, QD
     Route: 048
     Dates: start: 20050422, end: 20050519
  10. GLEEVEC [Suspect]
     Dosage: 300 MG, QD
     Route: 048
     Dates: start: 20050520, end: 20051016
  11. GLEEVEC [Suspect]
     Dosage: 400 MG, QD
     Route: 048
     Dates: start: 20051017, end: 20051110
  12. GLEEVEC [Suspect]
     Dosage: 300 MG, QD
     Route: 048
     Dates: start: 20051111, end: 20060105
  13. GLEEVEC [Suspect]
     Dosage: 100 MG, QD
     Route: 048
     Dates: start: 20060106
  14. CONIEL [Concomitant]
     Indication: HYPERTENSION
     Dates: end: 20060109
  15. GASTER [Concomitant]
     Indication: GASTRITIS
     Dates: end: 20060109
  16. ASPARA-CA [Concomitant]
     Indication: OSTEOPOROSIS
     Dates: end: 20060109
  17. ALFAROL [Concomitant]
     Indication: OSTEOPOROSIS
     Dates: end: 20060109
  18. SELBEX [Concomitant]
     Indication: GASTRITIS
  19. EXCELASE [Concomitant]
     Indication: DYSPEPSIA
     Dates: end: 20060109
  20. BIOFERMIN [Concomitant]
     Indication: DYSPEPSIA
     Dates: end: 20060109
  21. ROHYPNOL [Concomitant]
     Indication: INSOMNIA
  22. LASIX [Concomitant]
     Indication: DYSPEPSIA
     Dates: end: 20060109

REACTIONS (5)
  - ASPIRATION [None]
  - CARDIO-RESPIRATORY ARREST [None]
  - CHOKING [None]
  - DYSPHAGIA [None]
  - INJURY ASPHYXIATION [None]
